FAERS Safety Report 8286646-1 (Version None)
Quarter: 2012Q2

REPORT INFORMATION
  Report Type: 
  Country: None (occurrence: None)
  Receive Date: 20120416
  Receipt Date: 20120403
  Transmission Date: 20120825
  Serious: Yes (Other)
  Sender: FDA-Public Use
  Company Number: US-SHIRE-ALL1-2012-01769

PATIENT
  Age: 6 Year
  Sex: Female

DRUGS (2)
  1. VYVANSE [Suspect]
     Dosage: 20 MG, 1X/DAY:QD
     Route: 048
  2. VYVANSE [Suspect]
     Indication: PRODUCT USED FOR UNKNOWN INDICATION
     Dosage: UNK, 1X/DAY:QD (1/2 OF CONTENTS OF 20 MG CAPSULE)
     Route: 048
     Dates: start: 20111001

REACTIONS (6)
  - HALLUCINATION, AUDITORY [None]
  - ABNORMAL LOSS OF WEIGHT [None]
  - IMPULSIVE BEHAVIOUR [None]
  - TIC [None]
  - DRUG PRESCRIBING ERROR [None]
  - ANTISOCIAL BEHAVIOUR [None]
